FAERS Safety Report 8354932-2 (Version None)
Quarter: 2012Q2

REPORT INFORMATION
  Report Type: 
  Country: None (occurrence: None)
  Receive Date: 20120511
  Receipt Date: 20120507
  Transmission Date: 20120825
  Serious: No
  Sender: FDA-Public Use
  Company Number: US-PFIZER INC-2012111360

PATIENT
  Sex: Male
  Weight: 61.224 kg

DRUGS (10)
  1. FLONASE [Concomitant]
     Indication: HYPERSENSITIVITY
     Dosage: UNK
     Route: 045
  2. NITROGLYCERIN [Concomitant]
     Indication: MYOCARDIAL INFARCTION
     Dosage: 0.4 MG, AS NEEDED
  3. ATENOLOL [Concomitant]
     Dosage: 50 MG, 2X/DAY
  4. ZETIA [Concomitant]
     Dosage: 10 MG, 1X/DAY
  5. MAGNESIUM HYDROXIDE TAB [Concomitant]
     Indication: GASTROOESOPHAGEAL REFLUX DISEASE
     Dosage: UNK, 1X/DAY
  6. HYDROCHLOROTHIAZIDE [Concomitant]
     Dosage: 25 MG, 1X/DAY
  7. VIAGRA [Suspect]
     Indication: ERECTILE DYSFUNCTION
     Dosage: 100 MG AS NEEDED
     Route: 048
     Dates: start: 20111001
  8. ASPIRIN [Concomitant]
     Dosage: 81 MG, 1X/DAY
  9. LOSARTAN [Concomitant]
     Dosage: 50 MG, 2X/DAY
  10. NEXIUM [Concomitant]
     Dosage: 40 MG, 1X/DAY

REACTIONS (1)
  - DYSPHAGIA [None]
